FAERS Safety Report 24736234 (Version 2)
Quarter: 2024Q4

REPORT INFORMATION
  Report Type: Spontaneous
  Country: RS (occurrence: RS)
  Receive Date: 20241216
  Receipt Date: 20241223
  Transmission Date: 20250115
  Serious: Yes (Other)
  Sender: ROCHE
  Company Number: RS-ROCHE-10000151417

PATIENT
  Age: 59 Year
  Sex: Female

DRUGS (6)
  1. ACTEMRA [Suspect]
     Active Substance: TOCILIZUMAB
     Indication: Rheumatoid arthritis
     Route: 065
     Dates: start: 202403
  2. MABTHERA [Suspect]
     Active Substance: RITUXIMAB
     Indication: Rheumatoid arthritis
     Route: 065
  3. NIFEDIPINE [Concomitant]
     Active Substance: NIFEDIPINE
     Dates: start: 2013
  4. METHOTREXATE [Concomitant]
     Active Substance: METHOTREXATE
     Route: 051
  5. METHOTREXATE [Concomitant]
     Active Substance: METHOTREXATE
     Route: 048
  6. SULFASALAZINE [Concomitant]
     Active Substance: SULFASALAZINE

REACTIONS (2)
  - Interstitial lung disease [Unknown]
  - Platelet count decreased [Unknown]

NARRATIVE: CASE EVENT DATE: 20241001
